FAERS Safety Report 14661796 (Version 1)
Quarter: 2018Q1

REPORT INFORMATION
  Report Type: Spontaneous
  Country: US (occurrence: US)
  Receive Date: 20180318
  Receipt Date: 20180318
  Transmission Date: 20180509
  Serious: Yes (Hospitalization)
  Sender: FDA-Public Use
  Company Number: None

PATIENT
  Sex: Male

DRUGS (1)
  1. CAPECITABINE 500 MG [Suspect]
     Active Substance: CAPECITABINE
     Indication: PANCREATIC CARCINOMA
     Dosage: 3 TABLETS EVERY 12 HOURS FOR 3 WEEKS ON AND 1 WEEK ORALLY
     Route: 048
     Dates: start: 20180117

REACTIONS (7)
  - Peripheral swelling [None]
  - Blood pressure decreased [None]
  - Haemoptysis [None]
  - Pyrexia [None]
  - Chills [None]
  - Tremor [None]
  - Dry mouth [None]
